FAERS Safety Report 9152948 (Version 1)
Quarter: 2013Q1

REPORT INFORMATION
  Report Type: Spontaneous
  Country: US (occurrence: US)
  Receive Date: 20130206
  Receipt Date: 20130206
  Transmission Date: 20140127
  Serious: Yes (Hospitalization, Other)
  Sender: FDA-Public Use
  Company Number: US-RB-045194-12

PATIENT
  Age: 51 Year
  Sex: Male

DRUGS (5)
  1. SUBOXONE TABLET [Suspect]
     Indication: DRUG DEPENDENCE
     Route: 060
     Dates: start: 2008
  2. SUBOXONE TABLET [Suspect]
     Route: 060
  3. METOPROLOL [Concomitant]
     Indication: HYPERTENSION
     Dosage: DOSING DETAILS UNKNOWN
     Route: 065
  4. LISINOPRIL [Concomitant]
     Indication: HYPERTENSION
     Dosage: DOSING DETAILS UNKNOWN
     Route: 065
  5. ANTABUSE [Concomitant]
     Indication: ALCOHOLISM
     Dosage: DOSING DETAILS UNKNOWN
     Route: 065

REACTIONS (8)
  - Road traffic accident [Recovered/Resolved]
  - Concussion [Recovering/Resolving]
  - Multiple fractures [Recovered/Resolved]
  - Cerebral haemorrhage [Recovering/Resolving]
  - Hand fracture [Recovered/Resolved]
  - Spinal fracture [Not Recovered/Not Resolved]
  - Pain in extremity [Not Recovered/Not Resolved]
  - Foreign body [Recovered/Resolved]
